FAERS Safety Report 9778236 (Version 1)
Quarter: 2013Q4

REPORT INFORMATION
  Report Type: Spontaneous
  Country: US (occurrence: US)
  Receive Date: 20131223
  Receipt Date: 20131223
  Transmission Date: 20140711
  Serious: No
  Sender: FDA-Public Use
  Company Number: US-009507513-1312USA001720

PATIENT
  Sex: Female

DRUGS (1)
  1. AFRIN [Suspect]
     Dosage: DAILY
     Route: 045

REACTIONS (2)
  - Drug abuser [Unknown]
  - Inappropriate schedule of drug administration [Unknown]
